FAERS Safety Report 4687083-9 (Version None)
Quarter: 2005Q2

REPORT INFORMATION
  Report Type: 
  Country: None (occurrence: None)
  Receive Date: 20050608
  Receipt Date: 20050525
  Transmission Date: 20051028
  Serious: Yes (Other)
  Sender: FDA-Public Use
  Company Number: 2005080177

PATIENT
  Sex: Male
  Weight: 97.5234 kg

DRUGS (4)
  1. CELEBREX [Suspect]
     Indication: RHEUMATOID ARTHRITIS
     Dosage: 400 MG (200 MG, 2 IN 1 D) ORAL
     Route: 048
     Dates: end: 20040101
  2. POTASSIUM CHLORIDE [Concomitant]
  3. PREDNISONE TAB [Concomitant]
  4. FUROSEMIDE [Concomitant]

REACTIONS (4)
  - CEREBRAL CIRCULATORY FAILURE [None]
  - DYSPNOEA [None]
  - HEART RATE IRREGULAR [None]
  - WHEELCHAIR USER [None]
